FAERS Safety Report 16751845 (Version 2)
Quarter: 2019Q3

REPORT INFORMATION
  Report Type: Spontaneous
  Country: US (occurrence: US)
  Receive Date: 20190828
  Receipt Date: 20190909
  Transmission Date: 20191005
  Serious: Yes (Other)
  Sender: FDA-Public Use
  Company Number: US-AMGEN INC.-USASP2019137185

PATIENT
  Age: 60 Year
  Sex: Female
  Weight: 68.03 kg

DRUGS (8)
  1. AIMOVIG [Suspect]
     Active Substance: ERENUMAB-AOOE
     Indication: MIGRAINE
     Dosage: 70 MILLIGRAM, QMO
     Route: 058
     Dates: start: 20190709
  2. MAXALT-MLT [Concomitant]
     Active Substance: RIZATRIPTAN BENZOATE
     Dosage: 10 MILLIGRAM, PALCE 1 TAB INSIDE CHEEK EVERY 2 HOURS  MAX DOSE 30 MIG IN 24 HR
     Dates: start: 20190625
  3. PAMELOR [Concomitant]
     Active Substance: NORTRIPTYLINE HYDROCHLORIDE
     Dosage: 10 MILLIGRAM, TAKE 1 CAPSULE BY MOUTH DAILY AT BEDTIME
     Route: 048
     Dates: start: 20190625
  4. MAGNESIUM OXIDE. [Concomitant]
     Active Substance: MAGNESIUM OXIDE
     Dosage: 250 MILLIGRAM, QD, AT BEDTIMES
     Route: 048
  5. LIORESAL [Concomitant]
     Active Substance: BACLOFEN
     Indication: PAIN
     Dosage: 10 MILLIGRAM, TAKE 1 TABLET BY MOUTH 3 TIMES DAILY AS NEEDED FOR PAIN
     Dates: start: 20190625
  6. BONIVA [Concomitant]
     Active Substance: IBANDRONATE SODIUM
     Dosage: 150 MILLIGRAM, EVERY 30 DAYS
     Route: 048
     Dates: start: 20190521
  7. CALTRATE + D [CALCIUM;ERGOCALCIFEROL] [Concomitant]
     Dosage: 600MG-400UNIT TABLET, TAKE 1 TABLET BY MOUTH 2 TIMES DAILY WITH MEALS
     Route: 048
     Dates: start: 20180202
  8. DAILY VITE [COLECALCIFEROL;CYANOCOBALAMIN;ERGOCALCIFEROL;NICOTINAMIDE; [Concomitant]
     Dosage: UNK, QD, TAKE 1 TABLET BY MOUTH DAILY
     Route: 048

REACTIONS (1)
  - Arthralgia [Not Recovered/Not Resolved]

NARRATIVE: CASE EVENT DATE: 20190821
